FAERS Safety Report 9325978 (Version 1)
Quarter: 2013Q2

REPORT INFORMATION
  Report Type: Spontaneous
  Country: US (occurrence: US)
  Receive Date: 20130604
  Receipt Date: 20130604
  Transmission Date: 20140414
  Serious: Yes (Other)
  Sender: FDA-Public Use
  Company Number: US-RB-054427-13

PATIENT
  Age: 29 Year
  Sex: Male

DRUGS (1)
  1. MUCINEX DM [Suspect]
     Indication: PRODUCT USED FOR UNKNOWN INDICATION
     Dosage: TOTAL 3 DOSES, SINGLE DOSE ON 12-MAY-2013 AT 1PM, ON 13-MAY-2013 AT 8AM AND ON 14-MAY-2013 AT 8AM
     Route: 048
     Dates: start: 20130512

REACTIONS (5)
  - Anxiety [Unknown]
  - Palpitations [Unknown]
  - Hot flush [Unknown]
  - Hyperhidrosis [Unknown]
  - Feeling abnormal [Unknown]
